FAERS Safety Report 10261754 (Version 1)
Quarter: 2014Q2

REPORT INFORMATION
  Report Type: Spontaneous
  Country: US (occurrence: US)
  Receive Date: 20140626
  Receipt Date: 20140626
  Transmission Date: 20141212
  Serious: Yes (Congenital Anomaly)
  Sender: FDA-Public Use
  Company Number: US-FRI-1000068327

PATIENT
  Age: 0 Day
  Sex: Male

DRUGS (1)
  1. CELEXA [Suspect]
     Route: 064
     Dates: end: 20060514

REACTIONS (3)
  - Anal atresia [Unknown]
  - Hypospadias [Unknown]
  - Congenital anomaly [Unknown]
